FAERS Safety Report 24697174 (Version 10)
Quarter: 2025Q4

REPORT INFORMATION
  Report Type: Spontaneous
  Country: PK (occurrence: PK)
  Receive Date: 20241204
  Receipt Date: 20251027
  Transmission Date: 20260117
  Serious: Yes (Hospitalization, Other)
  Sender: PFIZER
  Company Number: PK-PFIZER INC-PV202400157254

PATIENT
  Age: 20 Year
  Sex: Male
  Weight: 55 kg

DRUGS (16)
  1. IXIFI [Suspect]
     Active Substance: INFLIXIMAB-QBTX
     Indication: Colitis ulcerative
     Dosage: 100 MG, 0, 2, 6 WEEKS THEN EVERY 8 WEEKS
     Route: 042
     Dates: start: 202407
  2. IXIFI [Suspect]
     Active Substance: INFLIXIMAB-QBTX
     Indication: Spondylitis
     Dosage: 200 MG, 0, 2, 6 WEEKS THEN EVERY 8 WEEKS
     Route: 042
  3. IXIFI [Suspect]
     Active Substance: INFLIXIMAB-QBTX
     Indication: Inflammatory bowel disease
     Dosage: 300 MG, 0, 2, 6 WEEKS THEN EVERY 8 WEEKS
     Route: 042
  4. IXIFI [Suspect]
     Active Substance: INFLIXIMAB-QBTX
     Indication: Renal amyloidosis
     Dosage: 300 MG, EVERY 8 WEEKS/2 MONTHS
     Route: 042
  5. METHOTREXATE [Concomitant]
     Active Substance: METHOTREXATE
     Dosage: 12.5 MG, WEEKLY
  6. METHOTREXATE [Concomitant]
     Active Substance: METHOTREXATE
     Dosage: 7.5 MG (3 TAB FRI 3 TAB SAT)
  7. RISEK [OMEPRAZOLE] [Concomitant]
     Dosage: 20 MG, AS NEEDED (EMPTY STOMACH)
  8. SULFASALAZINE [Concomitant]
     Active Substance: SULFASALAZINE
     Dosage: 1000 MG, 3X/DAY (500 MG 2+2+2 TID)
  9. FOLIC ACID [Concomitant]
     Active Substance: FOLIC ACID
     Dosage: 5 MG (5 MG DAILY EXCEPT FRI SAT)
  10. SPIROMIDE [Concomitant]
     Dosage: 20 MG, DAILY (1+0)
  11. NUBEROL [Concomitant]
     Dosage: 2 DF, 2X/DAY (FOR 3 WEEKS)
  12. TRAMADOL [Concomitant]
     Active Substance: TRAMADOL
     Dosage: 25 MG, 2X/DAY (1/2+1/2)
  13. ACHE FREE IBUPROFEN [Concomitant]
     Dosage: UNK
  14. PCAM [Concomitant]
     Dosage: UNK
  15. LASIX [Concomitant]
     Active Substance: FUROSEMIDE
     Dosage: 40 MG
  16. APIBAN [Concomitant]
     Dosage: 5 MG

REACTIONS (7)
  - Pleural effusion [Unknown]
  - Chronic kidney disease [Unknown]
  - Red blood cell sedimentation rate increased [Unknown]
  - Swelling face [Unknown]
  - Facial pain [Unknown]
  - Treatment noncompliance [Unknown]
  - Off label use [Unknown]

NARRATIVE: CASE EVENT DATE: 20250501
